FAERS Safety Report 7131953-9 (Version None)
Quarter: 2010Q4

REPORT INFORMATION
  Report Type: 
  Country: None (occurrence: None)
  Receive Date: 20101130
  Receipt Date: 20101130
  Transmission Date: 20110411
  Serious: No
  Sender: FDA-Public Use
  Company Number: None

PATIENT
  Sex: Male
  Weight: 97.5234 kg

DRUGS (4)
  1. DEXILANT [Suspect]
     Indication: IRON DEFICIENCY ANAEMIA
     Dosage: 60MG 1 PO QD ORAL
     Route: 048
     Dates: start: 20101022, end: 20101119
  2. METFORMIN [Concomitant]
  3. PRAVASTATIN [Concomitant]
  4. CARDURA [Concomitant]

REACTIONS (1)
  - ARTHRALGIA [None]
